FAERS Safety Report 8799971 (Version 1)
Quarter: 2012Q4

REPORT INFORMATION
  Report Type: Spontaneous
  Country: US (occurrence: None)
  Receive Date: 20120918
  Receipt Date: 20120918
  Transmission Date: 20130627
  Serious: No
  Sender: FDA-Public Use
  Company Number: None

PATIENT

DRUGS (1)
  1. PROVERA [Suspect]
     Indication: CONTRACEPTION
     Dosage: Once every 3 months

REACTIONS (3)
  - Weight increased [None]
  - Osteoporosis [None]
  - Infertility female [None]
